FAERS Safety Report 9406468 (Version 1)
Quarter: 2013Q3

REPORT INFORMATION
  Report Type: Spontaneous
  Country: US (occurrence: US)
  Receive Date: 20130718
  Receipt Date: 20130718
  Transmission Date: 20140515
  Serious: No
  Sender: FDA-Public Use
  Company Number: US-009507513-1307USA000243

PATIENT
  Sex: Female

DRUGS (1)
  1. COSOPT [Suspect]
     Route: 031

REACTIONS (3)
  - Drug dose omission [Unknown]
  - Device difficult to use [Unknown]
  - No adverse event [Unknown]
